FAERS Safety Report 5528180-5 (Version None)
Quarter: 2007Q4

REPORT INFORMATION
  Report Type: 
  Country: None (occurrence: None)
  Receive Date: 20071128
  Receipt Date: 20071121
  Transmission Date: 20080405
  Serious: Yes (Other)
  Sender: FDA-Public Use
  Company Number: FR-ALLERGAN-0712966US

PATIENT
  Sex: Female
  Weight: 69.85 kg

DRUGS (2)
  1. LUMIGAN [Suspect]
     Indication: GLAUCOMA
     Dates: start: 20071026, end: 20071031
  2. XALATAN [Concomitant]
     Indication: GLAUCOMA
     Dates: start: 20051001, end: 20071025

REACTIONS (5)
  - CONFUSIONAL STATE [None]
  - DISTURBANCE IN ATTENTION [None]
  - DYSPNOEA [None]
  - FOREIGN BODY SENSATION IN EYES [None]
  - PALPITATIONS [None]
